FAERS Safety Report 7063389-3 (Version None)
Quarter: 2010Q4

REPORT INFORMATION
  Report Type: 
  Country: None (occurrence: None)
  Receive Date: 20101026
  Receipt Date: 20100805
  Transmission Date: 20110411
  Serious: No
  Sender: FDA-Public Use
  Company Number: US-PFIZER INC-2010099425

PATIENT
  Sex: Male

DRUGS (5)
  1. LIPITOR [Suspect]
     Indication: CARDIAC DISORDER
     Dosage: 20 MG, UNK
     Route: 048
     Dates: start: 20100101, end: 20100420
  2. COSOPT [Concomitant]
     Indication: GLAUCOMA
     Dosage: UNK
  3. PLAVIX [Concomitant]
     Dosage: UNK
  4. AVAPRO [Concomitant]
     Dosage: UNK
  5. CO-Q-10 [Concomitant]
     Dosage: UNK

REACTIONS (1)
  - FEELING ABNORMAL [None]
